FAERS Safety Report 17658790 (Version 26)
Quarter: 2025Q3

REPORT INFORMATION
  Report Type: Report from Study
  Country: US (occurrence: US)
  Receive Date: 20200413
  Receipt Date: 20250701
  Transmission Date: 20251020
  Serious: Yes (Other)
  Sender: TAKEDA
  Company Number: US-SHIRE-US202013070

PATIENT
  Sex: Female
  Weight: 93 kg

DRUGS (39)
  1. HUMAN IMMUNOGLOBULIN G [Suspect]
     Active Substance: HUMAN IMMUNOGLOBULIN G
     Indication: Immunodeficiency common variable
     Dosage: 25 GRAM, Q4WEEKS
  2. HUMAN IMMUNOGLOBULIN G [Suspect]
     Active Substance: HUMAN IMMUNOGLOBULIN G
     Dosage: 25 GRAM, Q4WEEKS
     Dates: start: 20130227
  3. HUMAN IMMUNOGLOBULIN G [Suspect]
     Active Substance: HUMAN IMMUNOGLOBULIN G
     Dosage: 25 GRAM, Q4WEEKS
     Dates: start: 20130722
  4. HUMAN IMMUNOGLOBULIN G [Suspect]
     Active Substance: HUMAN IMMUNOGLOBULIN G
     Dosage: 25 GRAM, Q4WEEKS
     Dates: start: 20141017
  5. EPINEPHRINE [Concomitant]
     Active Substance: EPINEPHRINE
  6. MELOXICAM [Concomitant]
     Active Substance: MELOXICAM
  7. MECLIZINE HYDROCHLORIDE [Concomitant]
     Active Substance: MECLIZINE HYDROCHLORIDE
  8. VITAMIN C [Concomitant]
     Active Substance: ASCORBIC ACID
  9. SYNTHROID [Concomitant]
     Active Substance: LEVOTHYROXINE SODIUM
  10. MOMETASONE FUROATE [Concomitant]
     Active Substance: MOMETASONE FUROATE
  11. NASONEX [Concomitant]
     Active Substance: MOMETASONE FUROATE
  12. PEPCID [Concomitant]
     Active Substance: FAMOTIDINE
  13. SODIUM CHLORIDE [Concomitant]
     Active Substance: SODIUM CHLORIDE
  14. ESTRADIOL [Concomitant]
     Active Substance: ESTRADIOL
  15. VITAMIN D3 [Concomitant]
     Active Substance: CHOLECALCIFEROL
  16. AZELASTINE HYDROCHLORIDE [Concomitant]
     Active Substance: AZELASTINE HYDROCHLORIDE
  17. NEXIUM [Concomitant]
     Active Substance: ESOMEPRAZOLE MAGNESIUM
  18. SALINE [Concomitant]
     Active Substance: SODIUM CHLORIDE
  19. LEVALBUTEROL TARTRATE [Concomitant]
     Active Substance: LEVALBUTEROL TARTRATE
  20. DIPHENHYDRAMINE [Concomitant]
     Active Substance: DIPHENHYDRAMINE
  21. DIPHENHYDRAMINE HYDROCHLORIDE [Concomitant]
     Active Substance: DIPHENHYDRAMINE HYDROCHLORIDE
  22. MONTELUKAST SODIUM [Concomitant]
     Active Substance: MONTELUKAST SODIUM
  23. ZYRTEC [Concomitant]
     Active Substance: CETIRIZINE HYDROCHLORIDE
  24. MUCINEX [Concomitant]
     Active Substance: GUAIFENESIN
  25. ASPIRIN [Concomitant]
     Active Substance: ASPIRIN
  26. FLOVENT [Concomitant]
     Active Substance: FLUTICASONE PROPIONATE
  27. XOPENEX [Concomitant]
     Active Substance: LEVALBUTEROL HYDROCHLORIDE
  28. AMBIEN [Concomitant]
     Active Substance: ZOLPIDEM TARTRATE
  29. ZETIA [Concomitant]
     Active Substance: EZETIMIBE
  30. MOMETASONE [Concomitant]
     Active Substance: MOMETASONE
  31. XOPENEX HFA [Concomitant]
     Active Substance: LEVALBUTEROL TARTRATE
  32. CENESTIN [Concomitant]
     Active Substance: ESTROGENS, CONJUGATED SYNTHETIC A
  33. BANOPHEN [Concomitant]
     Active Substance: DIPHENHYDRAMINE HYDROCHLORIDE
  34. CLONIDINE HYDROCHLORIDE [Concomitant]
     Active Substance: CLONIDINE HYDROCHLORIDE
  35. ACETAMINOPHEN [Concomitant]
     Active Substance: ACETAMINOPHEN
  36. PENICILLIN G POTASSIUM [Concomitant]
     Active Substance: PENICILLIN G POTASSIUM
  37. CEFDINIR [Concomitant]
     Active Substance: CEFDINIR
  38. BENADRYL ALLERGY [Concomitant]
     Active Substance: DIPHENHYDRAMINE HYDROCHLORIDE
  39. COLACE [Concomitant]
     Active Substance: DOCUSATE SODIUM

REACTIONS (27)
  - Intellectual disability [Unknown]
  - Pneumonia [Unknown]
  - Pneumonitis [Unknown]
  - Mental disorder [Unknown]
  - Infusion related reaction [Unknown]
  - Oropharyngeal discomfort [Unknown]
  - Gastroenteritis viral [Unknown]
  - Viral infection [Unknown]
  - Neck pain [Recovering/Resolving]
  - Seasonal allergy [Unknown]
  - Smoke sensitivity [Unknown]
  - Gingivitis [Unknown]
  - Cystitis [Unknown]
  - Food allergy [Unknown]
  - Reaction to colouring [Unknown]
  - Feeling abnormal [Unknown]
  - Sinusitis [Unknown]
  - Vision blurred [Unknown]
  - Asthma [Unknown]
  - Asthenia [Recovering/Resolving]
  - Dyspnoea [Unknown]
  - Hypersensitivity [Unknown]
  - Pain in extremity [Recovering/Resolving]
  - Chills [Unknown]
  - Headache [Unknown]
  - Nausea [Unknown]
  - Myalgia [Unknown]
